FAERS Safety Report 8745623 (Version 2)
Quarter: 2012Q4

REPORT INFORMATION
  Report Type: 
  Country: CA (occurrence: CA)
  Receive Date: 20120826
  Receipt Date: 20121107
  Transmission Date: 20130627
  Serious: Yes (Other)
  Sender: FDA-Public Use
  Company Number: PHHY2006CA009477

PATIENT
  Sex: Female

DRUGS (1)
  1. SANDOSTATIN LAR [Suspect]
     Indication: GRAFT VERSUS HOST DISEASE IN INTESTINE
     Dosage: 20 mg, QMO
     Route: 030
     Dates: start: 20050722, end: 20060131

REACTIONS (9)
  - Abdominal pain [Unknown]
  - Diarrhoea [Unknown]
  - Fatigue [Unknown]
  - Tachycardia [Unknown]
  - Vomiting [Unknown]
  - Gastrointestinal disorder [Unknown]
  - Malnutrition [Unknown]
  - Weight decreased [Unknown]
  - Weight increased [Unknown]
